FAERS Safety Report 9826968 (Version 3)
Quarter: 2014Q1

REPORT INFORMATION
  Report Type: Spontaneous
  Country: US (occurrence: US)
  Receive Date: 20140117
  Receipt Date: 20140219
  Transmission Date: 20141002
  Serious: Yes (Hospitalization, Other)
  Sender: FDA-Public Use
  Company Number: US-BAXTER-2014BAX002194

PATIENT
  Age: 67 Year
  Sex: Female

DRUGS (1)
  1. DIANEAL LOW CALCIUM [Suspect]
     Indication: PERITONEAL DIALYSIS
     Dosage: 2 BAGS
     Route: 033
     Dates: start: 20110131

REACTIONS (6)
  - Haemoglobin decreased [Recovered/Resolved]
  - Peritonitis bacterial [Recovering/Resolving]
  - Diarrhoea [Recovered/Resolved]
  - Peritoneal dialysis complication [Recovered/Resolved]
  - Abdominal distension [Unknown]
  - Dehydration [Unknown]
